FAERS Safety Report 5153455-1 (Version None)
Quarter: 2006Q4

REPORT INFORMATION
  Report Type: 
  Country: None (occurrence: None)
  Receive Date: 20061117
  Receipt Date: 20061109
  Transmission Date: 20070319
  Serious: Yes (Hospitalization)
  Sender: FDA-Public Use
  Company Number: DE-ABBOTT-06P-062-0350033-00

PATIENT
  Sex: Female
  Weight: 75 kg

DRUGS (5)
  1. HUMIRA [Suspect]
     Indication: RHEUMATOID ARTHRITIS
     Route: 058
     Dates: start: 20050204, end: 20050601
  2. HUMIRA [Suspect]
     Route: 058
     Dates: start: 20051101
  3. LEFLUNOMIDE [Concomitant]
     Indication: RHEUMATOID ARTHRITIS
     Route: 048
     Dates: start: 20041101, end: 20050601
  4. DELTARAN [Concomitant]
     Indication: RHEUMATOID ARTHRITIS
     Route: 048
     Dates: end: 20050601
  5. PREDNISOLONE [Concomitant]
     Indication: RHEUMATOID ARTHRITIS
     Route: 048
     Dates: end: 20050601

REACTIONS (3)
  - CEREBRAL HAEMORRHAGE [None]
  - HYDROCEPHALUS [None]
  - RUPTURED CEREBRAL ANEURYSM [None]
